FAERS Safety Report 14348318 (Version 2)
Quarter: 2018Q1

REPORT INFORMATION
  Report Type: Report from Study
  Country: US (occurrence: US)
  Receive Date: 20180103
  Receipt Date: 20180112
  Transmission Date: 20180509
  Serious: Yes (Hospitalization)
  Sender: FDA-Public Use
  Company Number: US-ACTELION-A-NJ2016-139268

PATIENT
  Age: 53 Year
  Sex: Male
  Weight: 74.83 kg

DRUGS (13)
  1. UPTRAVI [Suspect]
     Active Substance: SELEXIPAG
     Dosage: 1600 MCG, BID
     Route: 048
  2. AMLODIPINE [Concomitant]
     Active Substance: AMLODIPINE BESYLATE
  3. UPTRAVI [Suspect]
     Active Substance: SELEXIPAG
     Indication: PULMONARY HYPERTENSION
     Dosage: 800 MCG, BID
     Route: 048
  4. FUROSEMIDE. [Concomitant]
     Active Substance: FUROSEMIDE
     Dosage: 40 MG, BID
  5. UPTRAVI [Suspect]
     Active Substance: SELEXIPAG
     Dosage: 1000 MCG, BID
     Route: 048
  6. UPTRAVI [Suspect]
     Active Substance: SELEXIPAG
     Dosage: 1200 MCG, BID
     Route: 048
  7. UPTRAVI [Suspect]
     Active Substance: SELEXIPAG
     Dosage: 600 MCG, BID
     Route: 048
  8. SILDENAFIL. [Concomitant]
     Active Substance: SILDENAFIL
  9. UPTRAVI [Suspect]
     Active Substance: SELEXIPAG
     Dosage: 400 MCG, BID
     Route: 048
     Dates: start: 20140508
  10. LETAIRIS [Concomitant]
     Active Substance: AMBRISENTAN
     Dosage: 10 MG, UNK
  11. DAPSONE. [Concomitant]
     Active Substance: DAPSONE
  12. ABACAVIR SULFATE W/DOLUTEGRAVIR SODIUM/LAMIVU [Concomitant]
     Active Substance: ABACAVIR SULFATE\DOLUTEGRAVIR SODIUM\LAMIVUDINE
  13. UPTRAVI [Suspect]
     Active Substance: SELEXIPAG
     Dosage: 200 MCG, Q12HRS
     Route: 048

REACTIONS (18)
  - Myalgia [Unknown]
  - Malaise [Unknown]
  - Gallbladder disorder [Recovered/Resolved]
  - Nausea [Unknown]
  - Infection [Recovered/Resolved]
  - Drain placement [Recovered/Resolved]
  - Headache [Recovered/Resolved]
  - Bedridden [Unknown]
  - Swelling [Recovered/Resolved]
  - Arthralgia [Unknown]
  - Abdominal discomfort [Unknown]
  - Pain [Unknown]
  - Insomnia [Unknown]
  - Dyspnoea exertional [Recovered/Resolved]
  - Restless legs syndrome [Unknown]
  - Feeling abnormal [Unknown]
  - Biliary colic [Unknown]
  - Treatment noncompliance [Unknown]
